FAERS Safety Report 4347153-1 (Version None)
Quarter: 2004Q1

REPORT INFORMATION
  Report Type: 
  Country: None (occurrence: None)
  Receive Date: 20040329
  Receipt Date: 20040107
  Transmission Date: 20041129
  Serious: Yes (Hospitalization)
  Sender: FDA-Public Use
  Company Number: USA040156082

PATIENT
  Age: 11 Year
  Sex: Male

DRUGS (4)
  1. STRATTERA [Suspect]
     Indication: ATTENTION DEFICIT/HYPERACTIVITY DISORDER
     Dosage: 18 MG DAY
     Dates: start: 20031001, end: 20041230
  2. CONCERTA [Concomitant]
  3. NUTROPIN [Concomitant]
  4. ALLEGRA (FEXOFANADINE HYDROCHLORIDE) [Concomitant]

REACTIONS (3)
  - DIZZINESS [None]
  - FATIGUE [None]
  - HYPERSOMNIA [None]
